FAERS Safety Report 8814096 (Version 4)
Quarter: 2013Q3

REPORT INFORMATION
  Report Type: Spontaneous
  Country: GB (occurrence: None)
  Receive Date: 20120925
  Receipt Date: 20130819
  Transmission Date: 20140515
  Serious: Yes (Death, Hospitalization, Other)
  Sender: FDA-Public Use
  Company Number: GB-JNJFOC-20120604415

PATIENT
  Age: 65 Year
  Sex: Male

DRUGS (2)
  1. DECITABINE [Suspect]
     Indication: MYELODYSPLASTIC SYNDROME
     Dosage: TEMPORARILY INTERRUPTED
     Route: 042
  2. PHOSPHATE (PHOSPHATES) EFFERVESCENT TABLETS [Concomitant]

REACTIONS (5)
  - Cardiac failure [None]
  - Anaemia [None]
  - Platelet count decreased [None]
  - Bronchopneumonia [None]
  - Drug resistance [None]
